FAERS Safety Report 5688757-3 (Version None)
Quarter: 2008Q1

REPORT INFORMATION
  Report Type: 
  Country: None (occurrence: None)
  Receive Date: 20080331
  Receipt Date: 20080225
  Transmission Date: 20080703
  Serious: Yes (Hospitalization, Other)
  Sender: FDA-Public Use
  Company Number: JP-BAYER-200813531GPV

PATIENT
  Age: 63 Year
  Sex: Male

DRUGS (4)
  1. ASPIRIN [Suspect]
     Indication: CARDIOVASCULAR EVENT PROPHYLAXIS
     Dosage: AS USED: 81 MG
     Route: 065
     Dates: start: 20050921, end: 20060201
  2. ASPIRIN [Suspect]
     Route: 065
     Dates: start: 20060215, end: 20060101
  3. SALICYLAMIDE [Suspect]
     Indication: NASOPHARYNGITIS
  4. ACETAMINOPHEN [Suspect]
     Indication: NASOPHARYNGITIS

REACTIONS (4)
  - ANAPHYLACTIC REACTION [None]
  - HYPOTONIA [None]
  - LOSS OF CONSCIOUSNESS [None]
  - URTICARIA [None]
